FAERS Safety Report 5826642-4 (Version None)
Quarter: 2008Q3

REPORT INFORMATION
  Report Type: 
  Country: None (occurrence: None)
  Receive Date: 20080728
  Receipt Date: 20080728
  Transmission Date: 20090109
  Serious: Yes (Hospitalization)
  Sender: FDA-Public Use
  Company Number: None

PATIENT
  Sex: Female
  Weight: 86.1834 kg

DRUGS (1)
  1. CHANTIX [Suspect]
     Indication: SMOKING CESSATION THERAPY
     Dosage: 1 TABLET TWICE A DAY PO
     Route: 048
     Dates: start: 20080705, end: 20080723

REACTIONS (3)
  - BLOOD TRIGLYCERIDES INCREASED [None]
  - PAIN [None]
  - PANCREATIC DISORDER [None]
